FAERS Safety Report 6425079-7 (Version None)
Quarter: 2009Q4

REPORT INFORMATION
  Report Type: 
  Country: None (occurrence: None)
  Receive Date: 20091103
  Receipt Date: 20091022
  Transmission Date: 20100525
  Serious: Yes (Hospitalization)
  Sender: FDA-Public Use
  Company Number: FR-PFIZER INC-2009286850

PATIENT
  Age: 73 Year
  Sex: Female

DRUGS (6)
  1. ZOLOFT [Suspect]
     Dosage: 1 DF, 2X/DAY
     Route: 048
     Dates: end: 20081113
  2. TAHOR [Suspect]
     Dosage: UNK
     Route: 048
     Dates: end: 20081113
  3. DI-ANTALVIC [Suspect]
     Dosage: UNK
     Route: 048
     Dates: end: 20081112
  4. DOLIPRANE [Suspect]
     Dosage: UNK
     Route: 048
     Dates: end: 20081112
  5. AMAREL [Suspect]
     Dosage: 3 MG, 1X/DAY
     Route: 048
     Dates: end: 20081113
  6. SKENAN [Concomitant]

REACTIONS (1)
  - CYTOLYTIC HEPATITIS [None]
